FAERS Safety Report 20449677 (Version 1)
Quarter: 2022Q1

REPORT INFORMATION
  Report Type: Spontaneous
  Country: US (occurrence: US)
  Receive Date: 20220209
  Receipt Date: 20220209
  Transmission Date: 20220423
  Serious: No
  Sender: FDA-Public Use
  Company Number: US-PFIZER INC-202200166317

PATIENT
  Age: 67 Year
  Sex: Female
  Weight: 58.97 kg

DRUGS (1)
  1. CYTOMEL [Suspect]
     Active Substance: LIOTHYRONINE SODIUM
     Indication: Thyroid disorder
     Dosage: 5 UG, EVERY 5 HOURS
     Dates: start: 2021

REACTIONS (5)
  - Product dose omission issue [Unknown]
  - Withdrawal syndrome [Recovering/Resolving]
  - Asthenia [Recovering/Resolving]
  - Visual impairment [Unknown]
  - Off label use [Unknown]
